FAERS Safety Report 15101200 (Version 2)
Quarter: 2018Q3

REPORT INFORMATION
  Report Type: Report from Study
  Country: CA (occurrence: CA)
  Receive Date: 20180703
  Receipt Date: 20180713
  Transmission Date: 20181010
  Serious: Yes (Death)
  Sender: FDA-Public Use
  Company Number: CA-TAIHO ONCOLOGY INC-EU-2018-00513

PATIENT
  Age: 52 Year
  Sex: Female
  Weight: 50.8 kg

DRUGS (1)
  1. LONSURF [Suspect]
     Active Substance: TIPIRACIL HYDROCHLORIDE\TRIFLURIDINE
     Indication: COLON CANCER METASTATIC
     Dosage: CYCLE 2 STARTED ON 05MAY2018 AND ENDED ON 02JUN2018
     Route: 048
     Dates: start: 20180407

REACTIONS (2)
  - Disease progression [Fatal]
  - Pyrexia [Not Recovered/Not Resolved]

NARRATIVE: CASE EVENT DATE: 20180407
